FAERS Safety Report 10429385 (Version 1)
Quarter: 2014Q3

REPORT INFORMATION
  Report Type: Spontaneous
  Country: FR (occurrence: FR)
  Receive Date: 20140904
  Receipt Date: 20140904
  Transmission Date: 20150326
  Serious: Yes (Other)
  Sender: FDA-Public Use
  Company Number: FR-ASTRAZENECA-2014SE64766

PATIENT
  Age: 584 Month
  Sex: Male

DRUGS (9)
  1. REMICADE [Suspect]
     Active Substance: INFLIXIMAB
     Dosage: 200 MG EVERY 8 WEEKS
     Route: 042
     Dates: start: 2006, end: 201212
  2. INEXIUM [Suspect]
     Active Substance: ESOMEPRAZOLE
     Route: 048
  3. LERCAN [Concomitant]
     Active Substance: LERCANIDIPINE
     Route: 048
     Dates: start: 201304, end: 201407
  4. MIOREL [Suspect]
     Active Substance: ORPHENADRINE
     Route: 048
  5. TEMERIT [Concomitant]
     Active Substance: NEBIVOLOL
     Route: 048
     Dates: start: 201405, end: 201407
  6. DOLIPRANE [Suspect]
     Active Substance: ACETAMINOPHEN
     Route: 048
  7. ANAFRANIL [Concomitant]
     Active Substance: CLOMIPRAMINE HYDROCHLORIDE
     Route: 048
     Dates: start: 201403, end: 201406
  8. REMICADE [Suspect]
     Active Substance: INFLIXIMAB
     Dosage: 200 MG EVERY 6 WEEKS
     Route: 042
     Dates: start: 201212, end: 20140702
  9. GABAPENTIN. [Concomitant]
     Active Substance: GABAPENTIN
     Route: 048
     Dates: end: 20140728

REACTIONS (2)
  - Hypertensive heart disease [Not Recovered/Not Resolved]
  - Hypertension [Not Recovered/Not Resolved]

NARRATIVE: CASE EVENT DATE: 201405
